FAERS Safety Report 17762907 (Version 1)
Quarter: 2020Q2

REPORT INFORMATION
  Report Type: Spontaneous
  Country: US (occurrence: US)
  Receive Date: 20200508
  Receipt Date: 20200508
  Transmission Date: 20200714
  Serious: Yes (Death)
  Sender: FDA-Public Use
  Company Number: US-JNJFOC-20200502059

PATIENT
  Age: 55 Year
  Sex: Female

DRUGS (10)
  1. SPRAVATO [Suspect]
     Active Substance: ESKETAMINE
     Dates: start: 20200116, end: 20200116
  2. SPRAVATO [Suspect]
     Active Substance: ESKETAMINE
     Dates: start: 20200210, end: 20200210
  3. SPRAVATO [Suspect]
     Active Substance: ESKETAMINE
     Dates: start: 20200217, end: 20200217
  4. SPRAVATO [Suspect]
     Active Substance: ESKETAMINE
     Dates: start: 20200409, end: 20200409
  5. SPRAVATO [Suspect]
     Active Substance: ESKETAMINE
     Indication: DEPRESSION
     Dates: start: 20200109, end: 20200109
  6. SPRAVATO [Suspect]
     Active Substance: ESKETAMINE
     Dates: start: 20200227, end: 20200227
  7. SPRAVATO [Suspect]
     Active Substance: ESKETAMINE
     Dates: start: 20200330, end: 20200330
  8. SPRAVATO [Suspect]
     Active Substance: ESKETAMINE
     Dates: start: 20200305, end: 20200305
  9. SPRAVATO [Suspect]
     Active Substance: ESKETAMINE
     Dates: start: 20200312, end: 20200312
  10. SPRAVATO [Suspect]
     Active Substance: ESKETAMINE
     Dates: start: 20200427, end: 20200427

REACTIONS (1)
  - Death [Fatal]

NARRATIVE: CASE EVENT DATE: 20200430
